FAERS Safety Report 8092351-7 (Version None)
Quarter: 2012Q1

REPORT INFORMATION
  Report Type: 
  Country: None (occurrence: None)
  Receive Date: 20120128
  Receipt Date: 20110824
  Transmission Date: 20120608
  Serious: No
  Sender: FDA-Public Use
  Company Number: US-ABBOTT-11P-163-0849020-00

PATIENT
  Age: 60 Year
  Sex: Female

DRUGS (14)
  1. Q10 [Concomitant]
     Indication: MEDICAL DIET
  2. HUMIRA [Suspect]
     Indication: CROHN'S DISEASE
     Dates: start: 20100701
  3. AZATHIOPRINE [Concomitant]
     Indication: PRODUCT USED FOR UNKNOWN INDICATION
  4. AZATHIOPRINE [Concomitant]
  5. ATENOLOL [Concomitant]
     Indication: BLOOD PRESSURE
  6. ASPIRIN [Concomitant]
     Indication: PROPHYLAXIS
  7. MULTI-VITAMINS [Concomitant]
     Indication: VITAMIN SUPPLEMENTATION
     Dosage: DAILY
  8. FISH OIL [Concomitant]
     Indication: MEDICAL DIET
  9. ANTIHISTAMINES [Concomitant]
     Indication: SEASONAL ALLERGY
  10. GLUCOSAMINE CHONDROITIN [Concomitant]
     Indication: OSTEOARTHRITIS
  11. HYDROCHLOROTHIAZIDE [Concomitant]
     Indication: BLOOD PRESSURE
  12. ZOLOFT [Concomitant]
     Indication: DEPRESSION
  13. CALCIUM [Concomitant]
     Indication: MINERAL SUPPLEMENTATION
  14. ACETAMINOPHEN [Concomitant]
     Indication: PRODUCT USED FOR UNKNOWN INDICATION

REACTIONS (1)
  - IMPETIGO [None]
